FAERS Safety Report 24231212 (Version 1)
Quarter: 2024Q3

REPORT INFORMATION
  Report Type: Report from Study
  Country: US (occurrence: US)
  Receive Date: 20240821
  Receipt Date: 20240821
  Transmission Date: 20241017
  Serious: Yes (Hospitalization, Other)
  Sender: ABBVIE
  Company Number: US-ABBVIE-5885589

PATIENT
  Age: 46 Year
  Sex: Female

DRUGS (1)
  1. SKYRIZI [Suspect]
     Active Substance: RISANKIZUMAB-RZAA
     Indication: Psoriasis
     Route: 058
     Dates: start: 20211208

REACTIONS (3)
  - Bladder obstruction [Recovering/Resolving]
  - Fall [Recovering/Resolving]
  - Coccydynia [Unknown]

NARRATIVE: CASE EVENT DATE: 20240806
